FAERS Safety Report 18587906 (Version 3)
Quarter: 2021Q1

REPORT INFORMATION
  Report Type: Spontaneous
  Country: US (occurrence: US)
  Receive Date: 20201207
  Receipt Date: 20210127
  Transmission Date: 20210419
  Serious: Yes (Other)
  Sender: FDA-Public Use
  Company Number: US-PFIZER INC-2020479481

PATIENT
  Age: 81 Year
  Sex: Female
  Weight: 83 kg

DRUGS (1)
  1. IBRANCE [Suspect]
     Active Substance: PALBOCICLIB
     Indication: BREAST CANCER FEMALE
     Dosage: 125 MG, CYCLIC (1 DAILY FOR 21 DAYS)
     Route: 048
     Dates: start: 20201124

REACTIONS (6)
  - Cardiac flutter [Unknown]
  - Cough [Recovered/Resolved]
  - Atrial fibrillation [Unknown]
  - Pain [Unknown]
  - Weight decreased [Unknown]
  - Joint swelling [Unknown]
